FAERS Safety Report 25705799 (Version 1)
Quarter: 2025Q3

REPORT INFORMATION
  Report Type: Spontaneous
  Country: US (occurrence: US)
  Receive Date: 20250820
  Receipt Date: 20250820
  Transmission Date: 20251021
  Serious: Yes (Death, Hospitalization)
  Sender: AMGEN
  Company Number: US-AMGEN-USASP2025161074

PATIENT
  Age: 72 Year
  Sex: Female

DRUGS (5)
  1. PREDNISONE [Suspect]
     Active Substance: PREDNISONE
     Indication: Product used for unknown indication
     Route: 065
  2. RITUXIMAB [Suspect]
     Active Substance: RITUXIMAB
     Indication: Mantle cell lymphoma
     Route: 065
     Dates: start: 2024
  3. TACROLIMUS [Concomitant]
     Active Substance: TACROLIMUS
  4. AZATHIOPRINE [Concomitant]
     Active Substance: AZATHIOPRINE
     Dates: end: 2024
  5. BENDAMUSTINE [Concomitant]
     Active Substance: BENDAMUSTINE
     Indication: Mantle cell lymphoma
     Route: 065
     Dates: start: 2024, end: 2024

REACTIONS (5)
  - Mantle cell lymphoma [Fatal]
  - Failure to thrive [Unknown]
  - Acute kidney injury [Not Recovered/Not Resolved]
  - Kidney fibrosis [Unknown]
  - Renal tubular atrophy [Unknown]

NARRATIVE: CASE EVENT DATE: 20240101
